FAERS Safety Report 6037314-8 (Version None)
Quarter: 2009Q1

REPORT INFORMATION
  Report Type: 
  Country: None (occurrence: None)
  Receive Date: 20090114
  Receipt Date: 20090107
  Transmission Date: 20090719
  Serious: Yes (Hospitalization, Disabling)
  Sender: FDA-Public Use
  Company Number: PHEH2009US00604

PATIENT
  Sex: Male

DRUGS (6)
  1. AREDIA [Suspect]
     Indication: MULTIPLE MYELOMA
     Dosage: 90 MG MONTHLY
     Route: 042
     Dates: start: 19970101, end: 20010101
  2. CHEMOTHERAPEUTICS NOS [Concomitant]
     Indication: MULTIPLE MYELOMA
  3. RADIATION THERAPY [Concomitant]
     Indication: BONE LESION
  4. COUMADIN [Concomitant]
  5. SYNTHROID [Concomitant]
  6. NORVASC [Concomitant]

REACTIONS (2)
  - BONE DISORDER [None]
  - PURULENT DISCHARGE [None]
